FAERS Safety Report 20877400 (Version 1)
Quarter: 2022Q2

REPORT INFORMATION
  Report Type: Spontaneous
  Country: PL (occurrence: PL)
  Receive Date: 20220526
  Receipt Date: 20220526
  Transmission Date: 20220721
  Serious: Yes (Hospitalization, Other)
  Sender: FDA-Public Use
  Company Number: PL-PFIZER INC-202200554051

PATIENT
  Age: 43 Year
  Sex: Female

DRUGS (16)
  1. GABAPENTIN [Suspect]
     Active Substance: GABAPENTIN
     Indication: Epilepsy
     Dosage: UNK
  2. PHENYTOIN SODIUM [Suspect]
     Active Substance: PHENYTOIN SODIUM
     Indication: Epilepsy
     Dosage: UNK
  3. CARBAMAZEPINE [Suspect]
     Active Substance: CARBAMAZEPINE
     Indication: Epilepsy
     Dosage: UNK
  4. DIAZEPAM [Suspect]
     Active Substance: DIAZEPAM
     Indication: Status epilepticus
     Dosage: UNK
     Route: 042
  5. LAMOTRIGINE [Suspect]
     Active Substance: LAMOTRIGINE
     Indication: Epilepsy
     Dosage: UNK
  6. LAMOTRIGINE [Suspect]
     Active Substance: LAMOTRIGINE
     Dosage: 200 MG, DAILY
  7. LEVETIRACETAM [Suspect]
     Active Substance: LEVETIRACETAM
     Indication: Epilepsy
     Dosage: UNK
  8. OXCARBAZEPINE [Suspect]
     Active Substance: OXCARBAZEPINE
     Indication: Epilepsy
     Dosage: 1800 MG, DAILY
  9. OXCARBAZEPINE [Suspect]
     Active Substance: OXCARBAZEPINE
     Dosage: 1500 MG, DAILY
  10. OXCARBAZEPINE [Suspect]
     Active Substance: OXCARBAZEPINE
     Dosage: 600 MG, DAILY
  11. TOPIRAMATE [Suspect]
     Active Substance: TOPIRAMATE
     Indication: Epilepsy
     Dosage: 800 MG, DAILY
  12. TOPIRAMATE [Suspect]
     Active Substance: TOPIRAMATE
     Dosage: 600 MG, DAILY
  13. TOPIRAMATE [Suspect]
     Active Substance: TOPIRAMATE
     Dosage: 200 MG, DAILY
  14. VALPROIC ACID [Suspect]
     Active Substance: VALPROIC ACID
     Indication: Epilepsy
     Dosage: 1000 MG, DAILY
  15. VALPROIC ACID [Suspect]
     Active Substance: VALPROIC ACID
     Dosage: 1500 MG, DAILY
  16. VALPROIC ACID [Suspect]
     Active Substance: VALPROIC ACID
     Dosage: 2000 MG, DAILY

REACTIONS (4)
  - Myoclonic epilepsy [Recovered/Resolved]
  - Mental impairment [Recovered/Resolved]
  - Status epilepticus [Recovered/Resolved]
  - Drug ineffective [Unknown]
